FAERS Safety Report 8167470-7 (Version None)
Quarter: 2012Q1

REPORT INFORMATION
  Report Type: 
  Country: None (occurrence: None)
  Receive Date: 20120227
  Receipt Date: 20120224
  Transmission Date: 20120608
  Serious: Yes (Other)
  Sender: FDA-Public Use
  Company Number: US-PFIZER INC-2012049988

PATIENT
  Sex: Female
  Weight: 52.154 kg

DRUGS (2)
  1. PREPARATION H MAXIMUM STRENGTH [Suspect]
     Dosage: UNK
  2. PREPARATION H MAXIMUM STRENGTH [Suspect]
     Indication: HAEMORRHOIDS
     Dosage: UNK, DAILY
     Dates: start: 20120223

REACTIONS (2)
  - DRUG ADMINISTRATION ERROR [None]
  - HAEMORRHAGE [None]
